FAERS Safety Report 11004033 (Version 1)
Quarter: 2015Q2

REPORT INFORMATION
  Report Type: Spontaneous
  Country: US (occurrence: None)
  Receive Date: 20150407
  Receipt Date: 20150407
  Transmission Date: 20150821
  Serious: Yes (Other)
  Sender: FDA-Public Use
  Company Number: 20150196

PATIENT
  Age: 40 Year
  Sex: Male

DRUGS (3)
  1. CLONIDINE. [Suspect]
     Active Substance: CLONIDINE
     Indication: PRODUCT USED FOR UNKNOWN INDICATION
     Route: 048
  2. EPHEDRINE [Concomitant]
     Active Substance: EPHEDRINE
  3. CYANOCOBALAMIN. [Suspect]
     Active Substance: CYANOCOBALAMIN
     Indication: CHEMICAL POISONING
     Dates: end: 201208

REACTIONS (9)
  - Swelling [None]
  - Blood pressure inadequately controlled [None]
  - Visual impairment [None]
  - Angioplasty [None]
  - Off label use [None]
  - Cerebrovascular accident [None]
  - Arterial injury [None]
  - Fluid retention [None]
  - Stent placement [None]
